FAERS Safety Report 20840560 (Version 1)
Quarter: 2022Q2

REPORT INFORMATION
  Report Type: Spontaneous
  Country: US (occurrence: US)
  Receive Date: 20220517
  Receipt Date: 20220517
  Transmission Date: 20220721
  Serious: No
  Sender: FDA-Public Use
  Company Number: US-PFIZER INC-202200594710

PATIENT
  Age: 64 Year
  Sex: Female

DRUGS (1)
  1. XELJANZ XR [Suspect]
     Active Substance: TOFACITINIB CITRATE
     Dosage: UNK

REACTIONS (7)
  - Malaise [Unknown]
  - Joint swelling [Unknown]
  - Peripheral swelling [Unknown]
  - Peripheral swelling [Unknown]
  - Oedema [Unknown]
  - Amnesia [Unknown]
  - Loss of personal independence in daily activities [Unknown]
